FAERS Safety Report 14028519 (Version 1)
Quarter: 2017Q3

REPORT INFORMATION
  Report Type: Spontaneous
  Country: US (occurrence: US)
  Receive Date: 20170930
  Receipt Date: 20170930
  Transmission Date: 20171128
  Serious: No
  Sender: FDA-Public Use
  Company Number: US-SA-2017SA049994

PATIENT
  Sex: Female

DRUGS (11)
  1. MICROZIDE [Concomitant]
     Active Substance: HYDROCHLOROTHIAZIDE
  2. SYNTHROID [Concomitant]
     Active Substance: LEVOTHYROXINE SODIUM
  3. AUBAGIO [Suspect]
     Active Substance: TERIFLUNOMIDE
     Indication: MULTIPLE SCLEROSIS
     Route: 048
     Dates: start: 20161122
  4. COQ10 [Concomitant]
     Active Substance: UBIDECARENONE
  5. VITAMIN D3 [Concomitant]
     Active Substance: CHOLECALCIFEROL
  6. BYSTOLIC [Concomitant]
     Active Substance: NEBIVOLOL HYDROCHLORIDE
  7. CITRACAL [Concomitant]
     Active Substance: CALCIUM CITRATE
  8. CYCLOBENZAPRINE. [Concomitant]
     Active Substance: CYCLOBENZAPRINE
  9. NIACIN. [Concomitant]
     Active Substance: NIACIN
  10. ZETIA [Concomitant]
     Active Substance: EZETIMIBE
  11. MINERALS NOS/VITAMINS NOS [Concomitant]

REACTIONS (1)
  - Rash pruritic [Unknown]
